FAERS Safety Report 6147767-2 (Version None)
Quarter: 2009Q2

REPORT INFORMATION
  Report Type: 
  Country: None (occurrence: None)
  Receive Date: 20090408
  Receipt Date: 20090328
  Transmission Date: 20091009
  Serious: Yes (Other)
  Sender: FDA-Public Use
  Company Number: US-AVENTIS-200912665US

PATIENT
  Age: 75 Year
  Sex: Female

DRUGS (2)
  1. LANTUS [Suspect]
     Route: 058
     Dates: start: 20020101
  2. OPTICLIK GREY [Suspect]
     Dates: start: 20070601

REACTIONS (2)
  - FUNCTIONAL RESIDUAL CAPACITY ABNORMAL [None]
  - TRANSIENT ISCHAEMIC ATTACK [None]
